FAERS Safety Report 9995959 (Version 2)
Quarter: 2014Q3

REPORT INFORMATION
  Report Type: Spontaneous
  Country: US (occurrence: US)
  Receive Date: 20140311
  Receipt Date: 20140904
  Transmission Date: 20150326
  Serious: Yes (Hospitalization)
  Sender: FDA-Public Use
  Company Number: US-BAYER-2014-035176

PATIENT
  Age: 46 Year
  Sex: Female
  Weight: 68.27 kg

DRUGS (10)
  1. OXAPROZIN. [Concomitant]
     Active Substance: OXAPROZIN
     Dosage: 600 MG, UNK
     Dates: start: 20080607
  2. ZYRTEC DAIICHI [Concomitant]
     Dosage: 10 MG, DAILY
     Dates: start: 20080703
  3. FAMCICLOVIR. [Concomitant]
     Active Substance: FAMCICLOVIR
     Dosage: 500 MG, UNK
     Dates: start: 20080611
  4. ALPRAZOLAM. [Concomitant]
     Active Substance: ALPRAZOLAM
     Dosage: 0.25 MG, UNK
     Dates: start: 20080607
  5. PRILOSEC [Concomitant]
     Active Substance: OMEPRAZOLE MAGNESIUM
     Indication: GASTROOESOPHAGEAL REFLUX DISEASE
     Dosage: 20 MG,DAILY
     Dates: start: 2000
  6. SINGULAIR [Concomitant]
     Active Substance: MONTELUKAST SODIUM
     Dosage: 10 MG, DAILY
     Dates: start: 20080703
  7. AVELOX [Concomitant]
     Active Substance: MOXIFLOXACIN HYDROCHLORIDE
     Dosage: 400 MG, UNK
     Dates: start: 20080702
  8. PRILOSEC [Concomitant]
     Active Substance: OMEPRAZOLE MAGNESIUM
     Indication: GASTROOESOPHAGEAL REFLUX DISEASE
     Dosage: UNK
     Dates: start: 20080703
  9. NASOCORT [Concomitant]
     Active Substance: TRIAMCINOLONE ACETONIDE
     Dosage: 2 PRAYS EACH NOSTRIL DAILY
     Route: 045
     Dates: start: 20080703
  10. YAZ [Suspect]
     Active Substance: DROSPIRENONE\ETHINYL ESTRADIOL
     Indication: PREMENSTRUAL SYNDROME
     Dosage: UNK
     Dates: start: 200608, end: 200807

REACTIONS (8)
  - General physical health deterioration [Recovering/Resolving]
  - Injury [Recovering/Resolving]
  - Peripheral swelling [Not Recovered/Not Resolved]
  - Deep vein thrombosis [None]
  - Abdominal pain [None]
  - Pain [Recovering/Resolving]
  - Thrombosis [Not Recovered/Not Resolved]
  - Pulmonary embolism [Recovering/Resolving]

NARRATIVE: CASE EVENT DATE: 200807
